FAERS Safety Report 4674726-9 (Version None)
Quarter: 2005Q2

REPORT INFORMATION
  Report Type: 
  Country: None (occurrence: None)
  Receive Date: 20050526
  Receipt Date: 20050517
  Transmission Date: 20051028
  Serious: Yes (Other)
  Sender: FDA-Public Use
  Company Number: PHBS2005BE07053

PATIENT

DRUGS (1)
  1. ZOMETA [Suspect]
     Route: 042

REACTIONS (3)
  - ASEPTIC NECROSIS BONE [None]
  - JAW DISORDER [None]
  - OSTEONECROSIS [None]
